FAERS Safety Report 4381476-5 (Version None)
Quarter: 2004Q2

REPORT INFORMATION
  Report Type: 
  Country: None (occurrence: None)
  Receive Date: 20040616
  Receipt Date: 20040601
  Transmission Date: 20050107
  Serious: Yes (Other)
  Sender: FDA-Public Use
  Company Number: USA040260101

PATIENT
  Age: 14 Year
  Sex: Male
  Weight: 28.5766 kg

DRUGS (2)
  1. STRATTERA [Suspect]
     Indication: ATTENTION DEFICIT/HYPERACTIVITY DISORDER
     Dosage: 80 MG/1 DAY
     Dates: start: 20031101, end: 20040525
  2. ZOLOFT [Concomitant]

REACTIONS (8)
  - CYTOMEGALOVIRUS ANTIBODY POSITIVE [None]
  - EDUCATIONAL PROBLEM [None]
  - HAEMATOCRIT DECREASED [None]
  - HAEMOGLOBIN INCREASED [None]
  - HEPATITIS [None]
  - LYMPHOCYTE COUNT DECREASED [None]
  - MONOCYTE COUNT INCREASED [None]
  - WHITE BLOOD CELL COUNT DECREASED [None]
